FAERS Safety Report 4390422-X (Version None)
Quarter: 2004Q2

REPORT INFORMATION
  Report Type: 
  Country: None (occurrence: None)
  Receive Date: 20040630
  Receipt Date: 20040617
  Transmission Date: 20050107
  Serious: Yes (Hospitalization)
  Sender: FDA-Public Use
  Company Number: 2004219857US

PATIENT
  Age: 60 Year
  Sex: Female
  Weight: 90.4 kg

DRUGS (2)
  1. CAMPTOSAR [Suspect]
     Indication: GLIOBLASTOMA
     Dosage: DAY 1,8,22,29
     Dates: start: 20040603, end: 20040610
  2. CLINICAL TRIAL PROCEDURE (CLINICAL TRIAL PROCEDURE) UNKNOWN [Suspect]
     Indication: GLIOBLASTOMA

REACTIONS (7)
  - BRAIN OEDEMA [None]
  - DELAYED EFFECTS OF RADIATION [None]
  - HEADACHE [None]
  - NAUSEA [None]
  - PHOTOPSIA [None]
  - VISUAL DISTURBANCE [None]
  - VOMITING [None]
